FAERS Safety Report 19573616 (Version 2)
Quarter: 2021Q3

REPORT INFORMATION
  Report Type: Report from Study
  Country: None (occurrence: US)
  Receive Date: 20210717
  Receipt Date: 20210726
  Transmission Date: 20211014
  Serious: Yes (Other)
  Sender: FDA-Public Use
  Company Number: US-ABBVIE-21K-163-3990369-00

PATIENT
  Sex: Female

DRUGS (1)
  1. HUMIRA [Suspect]
     Active Substance: ADALIMUMAB
     Indication: RHEUMATOID ARTHRITIS
     Route: 058
     Dates: start: 2018

REACTIONS (9)
  - Psychogenic seizure [Unknown]
  - Gait inability [Unknown]
  - Rheumatoid arthritis [Not Recovered/Not Resolved]
  - Accident [Unknown]
  - Hemiplegic migraine [Unknown]
  - Embolism [Unknown]
  - Postoperative thrombosis [Unknown]
  - Malaise [Unknown]
  - Dyskinesia [Not Recovered/Not Resolved]
